FAERS Safety Report 19425777 (Version 1)
Quarter: 2021Q2

REPORT INFORMATION
  Report Type: Spontaneous
  Country: US (occurrence: US)
  Receive Date: 20210617
  Receipt Date: 20210617
  Transmission Date: 20210717
  Serious: No
  Sender: FDA-Public Use
  Company Number: US-GLAXOSMITHKLINE-US2021126476

PATIENT
  Sex: Female

DRUGS (1)
  1. BREO ELLIPTA [Suspect]
     Active Substance: FLUTICASONE FUROATE\VILANTEROL TRIFENATATE
     Indication: PRODUCT USED FOR UNKNOWN INDICATION
     Dosage: 200?25MCG USE ONE INHALATION BY MOUTH ONCE DAILY
     Route: 055
     Dates: start: 2016, end: 20210608

REACTIONS (2)
  - Dyspnoea [Recovering/Resolving]
  - Cough [Unknown]
